FAERS Safety Report 11407634 (Version 1)
Quarter: 2015Q3

REPORT INFORMATION
  Report Type: Spontaneous
  Country: CH (occurrence: CH)
  Receive Date: 20150821
  Receipt Date: 20150821
  Transmission Date: 20151125
  Serious: Yes (Other)
  Sender: FDA-Public Use
  Company Number: CH-ALLERGAN-1515690US

PATIENT
  Sex: Female

DRUGS (3)
  1. ANDREAFOL [Concomitant]
     Indication: MATERNAL EXPOSURE TIMING UNSPECIFIED
     Dosage: 0.4 MG, QD
     Route: 064
  2. BOTOX [Suspect]
     Active Substance: ONABOTULINUMTOXINA
     Indication: MATERNAL EXPOSURE TIMING UNSPECIFIED
     Dosage: UNK, SINGLE
     Route: 064
     Dates: start: 20140415, end: 20140415
  3. PASPERTIN [Concomitant]
     Active Substance: METOCLOPRAMIDE HYDROCHLORIDE
     Indication: MATERNAL EXPOSURE TIMING UNSPECIFIED
     Route: 064

REACTIONS (1)
  - Foetal growth restriction [Unknown]
